FAERS Safety Report 4303336-8 (Version None)
Quarter: 2004Q1

REPORT INFORMATION
  Report Type: 
  Country: None (occurrence: None)
  Receive Date: 20040223
  Receipt Date: 20040210
  Transmission Date: 20041129
  Serious: Yes (Congenital Anomaly)
  Sender: FDA-Public Use
  Company Number: TR-JNJFOC-20040202778

PATIENT
  Sex: Male
  Weight: 3.3 kg

DRUGS (3)
  1. TOPOMAX (TOPIRAMATE) TABLETS [Suspect]
     Indication: MATERNAL DRUGS AFFECTING FOETUS
     Dosage: 50 MG, 2 IN 1 DAY, TRANSPLACENTAL
     Route: 064
     Dates: start: 20030401
  2. FOLIC ACID (FOLIC ACID) TABLETS [Suspect]
     Indication: MATERNAL DRUGS AFFECTING FOETUS
     Dosage: 5 MG, 1 IN 1 DAY, TRANSPLACENTAL
     Route: 064
     Dates: start: 20030523, end: 20040101
  3. CITALOPRAM (CITALOPRAM) TABLETS [Suspect]
     Indication: MATERNAL DRUGS AFFECTING FOETUS
     Dosage: 10 MG, 1 IN 1 DAY, TRANSPLACENTAL
     Route: 064
     Dates: start: 20030623

REACTIONS (2)
  - MATERNAL DRUGS AFFECTING FOETUS [None]
  - PHIMOSIS [None]
